FAERS Safety Report 7624596-1 (Version None)
Quarter: 2011Q3

REPORT INFORMATION
  Report Type: 
  Country: None (occurrence: None)
  Receive Date: 20110720
  Receipt Date: 20110712
  Transmission Date: 20111222
  Serious: Yes (Other)
  Sender: FDA-Public Use
  Company Number: US-BAYER-2011-024125

PATIENT
  Age: 28 Year
  Sex: Female
  Weight: 69.388 kg

DRUGS (4)
  1. VALTREX [Concomitant]
     Dosage: 500 MG, PRN
  2. DUAC [Concomitant]
  3. MIRENA [Suspect]
     Indication: CONTRACEPTION
     Dosage: 20 MCG/24HR, CONT
     Route: 015
     Dates: start: 20100928, end: 20110315
  4. TRETINOIN [Concomitant]

REACTIONS (2)
  - DEVICE DISLOCATION [None]
  - DEVICE EXPULSION [None]
